FAERS Safety Report 23894045 (Version 1)
Quarter: 2024Q2

REPORT INFORMATION
  Report Type: Spontaneous
  Country: US (occurrence: US)
  Receive Date: 20240524
  Receipt Date: 20240524
  Transmission Date: 20240715
  Serious: No
  Sender: FDA-Public Use
  Company Number: US-TEVA-VS-3197516

PATIENT
  Age: 85 Year
  Sex: Female

DRUGS (1)
  1. QVAR REDIHALER [Suspect]
     Active Substance: BECLOMETHASONE DIPROPIONATE
     Indication: Product used for unknown indication
     Dosage: 80 MCG, INHALATION - AEROSOL
     Route: 065

REACTIONS (3)
  - Product dispensing issue [Unknown]
  - Dysphonia [Unknown]
  - Dyspnoea [Unknown]
